FAERS Safety Report 10214223 (Version 1)
Quarter: 2014Q2

REPORT INFORMATION
  Report Type: Report from Study
  Country: US (occurrence: US)
  Receive Date: 20140603
  Receipt Date: 20140603
  Transmission Date: 20141212
  Serious: Yes (Other)
  Sender: FDA-Public Use
  Company Number: US-IPSEN BIOPHARMACEUTICALS, INC.-2014-2593

PATIENT
  Sex: Male

DRUGS (4)
  1. INCRELEX [Suspect]
     Indication: GROWTH HORMONE DEFICIENCY
     Route: 058
     Dates: start: 20080115, end: 20080128
  2. INCRELEX [Suspect]
     Route: 058
     Dates: start: 20080129, end: 20100819
  3. MEDICATION FOR ADD [Concomitant]
     Indication: ATTENTION DEFICIT/HYPERACTIVITY DISORDER
     Dosage: NOT REPORTED
     Route: 065
  4. ANTI DEPRESSION MEDICATION [Concomitant]
     Indication: DEPRESSION
     Dosage: NOT REPORTED
     Route: 065

REACTIONS (3)
  - Respiratory distress [Unknown]
  - Laceration [Recovered/Resolved]
  - Drug dose omission [Unknown]
